FAERS Safety Report 6493664-2 (Version None)
Quarter: 2009Q4

REPORT INFORMATION
  Report Type: 
  Country: None (occurrence: None)
  Receive Date: 20091214
  Receipt Date: 20091208
  Transmission Date: 20100525
  Serious: Yes (Hospitalization)
  Sender: FDA-Public Use
  Company Number: B0606703A

PATIENT
  Sex: Female
  Weight: 71 kg

DRUGS (10)
  1. LAPATINIB [Suspect]
     Dosage: 1250MG PER DAY
     Route: 048
     Dates: start: 20091106
  2. PACLITAXEL [Suspect]
     Dosage: 110MG WEEKLY
     Route: 042
     Dates: start: 20091105
  3. MORPHINE SULFATE [Concomitant]
     Indication: PAIN
     Dates: start: 20091022
  4. MORPHINE HYDROCHLORIDE [Concomitant]
     Indication: PAIN
     Dates: start: 20091022
  5. VENLAFAXINE HYDROCHLORIDE [Concomitant]
     Dates: start: 20060101
  6. ONDANSETRON [Concomitant]
     Indication: NAUSEA
     Dates: start: 20091104
  7. LACTULOSE [Concomitant]
     Indication: CONSTIPATION
     Dates: start: 20091030
  8. ESOMEPRAZOLE [Concomitant]
     Dates: start: 20091030
  9. NAPROSYN [Concomitant]
     Indication: PAIN
     Dates: start: 20091030
  10. GASTROLYTE [Concomitant]
     Dates: start: 20091030

REACTIONS (4)
  - CONDITION AGGRAVATED [None]
  - MUCOSAL INFLAMMATION [None]
  - NEUTROPENIA [None]
  - VOMITING [None]
